FAERS Safety Report 6441901-2 (Version None)
Quarter: 2009Q4

REPORT INFORMATION
  Report Type: 
  Country: None (occurrence: None)
  Receive Date: 20091113
  Receipt Date: 20091113
  Transmission Date: 20100525
  Serious: No
  Sender: FDA-Public Use
  Company Number: None

PATIENT
  Sex: Male
  Weight: 65.7716 kg

DRUGS (1)
  1. REBIF [Suspect]
     Indication: MULTIPLE SCLEROSIS
     Dosage: 44MCG 3 DAYS/WEEK SQ
     Route: 058
     Dates: start: 20081130, end: 20091112

REACTIONS (2)
  - INJECTION SITE PAIN [None]
  - MYALGIA [None]
